FAERS Safety Report 5595711-9 (Version None)
Quarter: 2008Q1

REPORT INFORMATION
  Report Type: 
  Country: None (occurrence: None)
  Receive Date: 20080118
  Receipt Date: 20080107
  Transmission Date: 20080703
  Serious: Yes (Life-Threatening, Other)
  Sender: FDA-Public Use
  Company Number: NZ-PURDUE-DEU_2008_0003946

PATIENT
  Age: 53 Year
  Sex: Female
  Weight: 58 kg

DRUGS (10)
  1. MORPHINE SULFATE [Suspect]
     Indication: PROCEDURAL PAIN
     Dosage: UNK, SEE TEXT
     Route: 037
  2. BUPIVACAINE [Concomitant]
  3. REMIFENTANIL [Concomitant]
  4. PAROXETINE [Concomitant]
  5. ACETAMINOPHEN [Concomitant]
  6. MIDAZOLAM HCL [Concomitant]
  7. PROPOFOL [Concomitant]
  8. ROCURONIUM BROMIDE [Concomitant]
  9. SEVOFLURANE [Concomitant]
  10. OXYGEN [Concomitant]

REACTIONS (4)
  - LOSS OF CONSCIOUSNESS [None]
  - MIOSIS [None]
  - OBSTRUCTIVE AIRWAYS DISORDER [None]
  - RESPIRATORY DEPRESSION [None]
